FAERS Safety Report 6169446-8 (Version None)
Quarter: 2009Q2

REPORT INFORMATION
  Report Type: 
  Country: None (occurrence: None)
  Receive Date: 20090428
  Receipt Date: 20090419
  Transmission Date: 20091009
  Serious: Yes (Hospitalization, Other)
  Sender: FDA-Public Use
  Company Number: PHHY2009OM02549

PATIENT
  Age: 64 Year
  Sex: Male

DRUGS (9)
  1. TASIGNA [Suspect]
     Indication: CHRONIC MYELOID LEUKAEMIA
     Dosage: 600 MG, BID
     Route: 048
     Dates: start: 20080303
  2. NIFEDIPINE [Concomitant]
     Dosage: UNK
  3. GLICLAZIDE [Concomitant]
     Dosage: UNK
  4. MULTIDRUG THERAPY [Concomitant]
  5. ASPIRIN [Concomitant]
     Dosage: 75 MG, QD
     Dates: start: 20090127
  6. SIMVASTATIN [Concomitant]
     Indication: HYPERLIPIDAEMIA
  7. INSULIN [Concomitant]
  8. CARVEDILOL [Concomitant]
     Indication: HYPERTENSION
     Dosage: 20 MG, QD
     Dates: start: 20090209
  9. AMLODIPINE [Concomitant]
     Indication: HYPERTENSION
     Dosage: 10 MG, QD
     Dates: start: 20090207

REACTIONS (8)
  - ACUTE CORONARY SYNDROME [None]
  - ANGINA UNSTABLE [None]
  - ANGIOGRAM ABNORMAL [None]
  - CHEST PAIN [None]
  - CORONARY ARTERY BYPASS [None]
  - CORONARY ARTERY STENOSIS [None]
  - ELECTROCARDIOGRAM ABNORMAL [None]
  - MYOCARDIAL ISCHAEMIA [None]
